FAERS Safety Report 16230299 (Version 1)
Quarter: 2019Q2

REPORT INFORMATION
  Report Type: Other
  Country: NL (occurrence: NL)
  Receive Date: 20190423
  Receipt Date: 20190423
  Transmission Date: 20190711
  Serious: Yes (Other)
  Sender: FDA-Public Use
  Company Number: NL-ALSI-201900173

PATIENT
  Age: 37 Year
  Sex: Male

DRUGS (1)
  1. NITROUS OXIDE. [Suspect]
     Active Substance: NITROUS OXIDE
     Indication: SUBSTANCE USE
     Route: 055

REACTIONS (5)
  - Hypoaesthesia [Recovering/Resolving]
  - Sensory loss [Recovering/Resolving]
  - Vitamin B12 deficiency [Recovering/Resolving]
  - Substance use [Recovering/Resolving]
  - Gait disturbance [Recovering/Resolving]
